FAERS Safety Report 15761665 (Version 1)
Quarter: 2018Q4

REPORT INFORMATION
  Report Type: Report from Study
  Country: None (occurrence: SA)
  Receive Date: 20181226
  Receipt Date: 20181226
  Transmission Date: 20190205
  Serious: Yes (Life-Threatening, Hospitalization)
  Sender: FDA-Public Use
  Company Number: SA-ABBVIE-18S-259-2603097-00

PATIENT
  Sex: Female

DRUGS (1)
  1. DUODOPA [Suspect]
     Active Substance: CARBIDOPA\LEVODOPA
     Indication: PARKINSON^S DISEASE
     Dosage: 4.1 ML/HR
     Route: 050
     Dates: start: 20171012

REACTIONS (3)
  - Anaemia [Unknown]
  - Pneumonia [Unknown]
  - Hypophagia [Unknown]
